FAERS Safety Report 7126470-6 (Version None)
Quarter: 2010Q4

REPORT INFORMATION
  Report Type: 
  Country: None (occurrence: None)
  Receive Date: 20101129
  Receipt Date: 20101117
  Transmission Date: 20110411
  Serious: Yes (Other)
  Sender: FDA-Public Use
  Company Number: PHHY2010US79003

PATIENT
  Sex: Female

DRUGS (15)
  1. RECLAST [Suspect]
     Dosage: UNK
     Dates: start: 20101111
  2. LASIX [Concomitant]
  3. LISINOPRIL [Concomitant]
  4. TOPROL-XL [Concomitant]
  5. PLATINIX [Concomitant]
  6. COUMADIN [Concomitant]
  7. VITAMIN D [Concomitant]
  8. KLOR-CON [Concomitant]
  9. CALCIUM [Concomitant]
     Dosage: 15000MG
  10. CENTRUM SILVER [Concomitant]
  11. MS CONTIN [Concomitant]
  12. AMBIEN CR [Concomitant]
  13. XANAX [Concomitant]
  14. OXYCODONE HCL [Concomitant]
  15. FENTANYL [Concomitant]

REACTIONS (17)
  - AGITATION [None]
  - ANKLE FRACTURE [None]
  - ANXIETY [None]
  - BACK PAIN [None]
  - CHILLS [None]
  - DECREASED APPETITE [None]
  - DIARRHOEA [None]
  - ERYTHEMA [None]
  - HYPOTENSION [None]
  - INSOMNIA [None]
  - MALAISE [None]
  - NAUSEA [None]
  - OEDEMA PERIPHERAL [None]
  - PRURITUS [None]
  - PYREXIA [None]
  - RASH MACULAR [None]
  - VOMITING [None]
